FAERS Safety Report 4802064-X (Version None)
Quarter: 2005Q4

REPORT INFORMATION
  Report Type: 
  Country: None (occurrence: None)
  Receive Date: 20051018
  Receipt Date: 20051007
  Transmission Date: 20060501
  Serious: Yes (Death)
  Sender: FDA-Public Use
  Company Number: PHBS2005IN14920

PATIENT
  Age: 34 Year
  Sex: Male

DRUGS (5)
  1. CICLOSPORIN [Suspect]
     Indication: RENAL TRANSPLANT
     Dosage: 6 MG/KG/D
  2. CICLOSPORIN [Suspect]
     Dosage: 3-4 MG/KG/D
  3. AZATHIOPRINE [Suspect]
     Indication: RENAL TRANSPLANT
     Dosage: 1.5 MG/KG/D
  4. PREDNISOLONE [Suspect]
     Indication: RENAL TRANSPLANT
     Dosage: 50 MG/D
  5. PREDNISOLONE [Suspect]
     Dosage: 20 MG/D

REACTIONS (5)
  - DIFFUSE LARGE B-CELL LYMPHOMA [None]
  - JEJUNECTOMY [None]
  - LYMPHOPROLIFERATIVE DISORDER [None]
  - NEOPLASM RECURRENCE [None]
  - PERITONITIS [None]
